FAERS Safety Report 8951172 (Version 1)
Quarter: 2012Q4

REPORT INFORMATION
  Report Type: Spontaneous
  Country: US (occurrence: None)
  Receive Date: 20121107
  Receipt Date: 20121107
  Transmission Date: 20130627
  Serious: Yes (Hospitalization)
  Sender: FDA-Public Use
  Company Number: 2012033841

PATIENT
  Age: 60 Year
  Sex: Female
  Weight: 87.09 kg

DRUGS (19)
  1. HIZENTRA [Suspect]
     Indication: IMMUNODEFICIENCY COMMON VARIABLE
     Route: 058
     Dates: start: 20120920, end: 20120920
  2. HIZENTRA [Suspect]
     Indication: IMMUNODEFICIENCY COMMON VARIABLE
  3. IBUPROFEN (IBUPROFEN) [Concomitant]
  4. ACETAMINOPHEN (PARACETAMOL),ACETYLSAL ACID,CAFFEINE CITRATE [Concomitant]
  5. DIPHENHYDRAMINE (DIPHENHYDRAMINE) [Concomitant]
  6. EPINEPHRINE (EPINEPHRINE) [Concomitant]
  7. PRILOCAINE/LIDOCAINE (EMLA /00675501/) [Concomitant]
  8. PROBIOTIC (LACTOBACILLUS REUTERI) [Concomitant]
  9. MILK THISTLE (SELYBUM MARIANUM) [Concomitant]
  10. GLUCOSAMIN-CHONDROITIN-MSM (JOINT FOOD) [Concomitant]
  11. FIORINAL WITH CODEINE (FIORINAL-C 1/4 /00141301/) [Concomitant]
  12. VALTREX (VALACICLOVIR HYDROCHLORIDE) [Concomitant]
  13. EFFEXOR (VENLAFAXINE) [Concomitant]
  14. XANAX (ALPRAZOLAM) [Concomitant]
  15. TRAZODONE (TRAZODONE) [Concomitant]
  16. FLAXSEED OIL (LINUM USITATISSIMUM SEED OIL [Concomitant]
  17. MULTIVITAMIN (ACCOMIN MULTIVITAMIN) [Concomitant]
  18. DYAZIDE (DYAZIDE) [Concomitant]
  19. LAMICTAL (LAMOTRIGINE) [Concomitant]

REACTIONS (7)
  - Flushing [None]
  - Nausea [None]
  - Arthralgia [None]
  - Hyperhidrosis [None]
  - Swollen tongue [None]
  - Movement disorder [None]
  - Dehydration [None]
